FAERS Safety Report 19727264 (Version 1)
Quarter: 2021Q3

REPORT INFORMATION
  Report Type: Spontaneous
  Country: US (occurrence: US)
  Receive Date: 20210820
  Receipt Date: 20210820
  Transmission Date: 20211014
  Serious: Yes (Life-Threatening, Other)
  Sender: FDA-Public Use
  Company Number: None

PATIENT
  Age: 44 Year
  Sex: Female
  Weight: 65.25 kg

DRUGS (10)
  1. GABAPENTIN 300MG [Concomitant]
     Active Substance: GABAPENTIN
  2. MIRENA [Concomitant]
     Active Substance: LEVONORGESTREL
  3. SUMATRIPTAN 100MG [Concomitant]
     Active Substance: SUMATRIPTAN
  4. HYDROCODONE/ACETAMINOPHEN [Concomitant]
     Active Substance: ACETAMINOPHEN\HYDROCODONE
  5. LACTOBACILLUS [Concomitant]
     Active Substance: LACTOBACILLUS ACIDOPHILUS
  6. MULTIVITAMIN [Concomitant]
     Active Substance: VITAMINS
  7. ROPINIROLE 1MG [Concomitant]
     Active Substance: ROPINIROLE
  8. SERTRALINE [Concomitant]
     Active Substance: SERTRALINE HYDROCHLORIDE
  9. EMGALITY [Suspect]
     Active Substance: GALCANEZUMAB-GNLM
     Indication: MIGRAINE PROPHYLAXIS
     Dosage: ?          OTHER FREQUENCY:ONCE;?
     Route: 058
     Dates: start: 20210814, end: 20210820
  10. CYCLOBENZAPRINE 10MG [Concomitant]
     Active Substance: CYCLOBENZAPRINE

REACTIONS (5)
  - Arthralgia [None]
  - Depression [None]
  - Fatigue [None]
  - Suicidal ideation [None]
  - Apathy [None]

NARRATIVE: CASE EVENT DATE: 20210818
